FAERS Safety Report 6088103-X (Version None)
Quarter: 2009Q1

REPORT INFORMATION
  Report Type: 
  Country: None (occurrence: None)
  Receive Date: 20090218
  Receipt Date: 20090203
  Transmission Date: 20090719
  Serious: Yes (Hospitalization)
  Sender: FDA-Public Use
  Company Number: 8042763

PATIENT
  Age: 61 Year
  Sex: Female

DRUGS (9)
  1. KEPPRA [Suspect]
     Indication: EPILEPSY
     Dosage: 1 G /D PO
     Route: 048
     Dates: start: 20081126, end: 20081208
  2. TRILEPTAL [Concomitant]
  3. RIVOTRIL [Concomitant]
  4. SEROPRAM /00582602/ [Concomitant]
  5. DEPAKINE CHRONO /01294701/ [Concomitant]
  6. DI-HYDAN [Concomitant]
  7. INIPOMP /01263201/ [Concomitant]
  8. GARDENAL /00023201/ [Concomitant]
  9. ARIXTRA [Concomitant]

REACTIONS (1)
  - THROMBOCYTOPENIA [None]
